FAERS Safety Report 4461935-7 (Version None)
Quarter: 2004Q3

REPORT INFORMATION
  Report Type: 
  Country: None (occurrence: None)
  Receive Date: 20040924
  Receipt Date: 20040908
  Transmission Date: 20050211
  Serious: Yes (Other)
  Sender: FDA-Public Use
  Company Number: 2004S1000063

PATIENT
  Age: 21 Year
  Sex: Female

DRUGS (1)
  1. ACITRETIN (ACITRETIN) (25 MG) [Suspect]
     Dosage: 25 MG; QD; PO
     Route: 048

REACTIONS (1)
  - PREGNANCY [None]
